FAERS Safety Report 21927605 (Version 1)
Quarter: 2023Q1

REPORT INFORMATION
  Report Type: Spontaneous
  Country: US (occurrence: US)
  Receive Date: 20230130
  Receipt Date: 20230130
  Transmission Date: 20230418
  Serious: Yes (Death)
  Sender: FDA-Public Use
  Company Number: US-PFIZER INC-202300041430

PATIENT
  Age: 35 Year
  Sex: Female

DRUGS (1)
  1. IBRANCE [Suspect]
     Active Substance: PALBOCICLIB
     Dosage: ONCE DAILY ON DAYS 1 TO 21, FOLLOWED BY 7 DAYS OF REST. REPEAT EVERY 28 DAYS
     Route: 048

REACTIONS (1)
  - Death [Fatal]
